FAERS Safety Report 8463731-2 (Version None)
Quarter: 2012Q2

REPORT INFORMATION
  Report Type: 
  Country: None (occurrence: None)
  Receive Date: 20120625
  Receipt Date: 20120613
  Transmission Date: 20120825
  Serious: Yes (Other)
  Sender: FDA-Public Use
  Company Number: AU-BRISTOL-MYERS SQUIBB COMPANY-16687402

PATIENT
  Age: 30 Year
  Sex: Female

DRUGS (2)
  1. CISPLATIN [Suspect]
     Indication: ADRENAL CARCINOMA
     Route: 013
  2. MITOTANE [Suspect]
     Indication: ADRENAL CARCINOMA
     Dosage: DURATION: 6-8 MONTHS
     Route: 048
     Dates: end: 20091201

REACTIONS (5)
  - MALAISE [None]
  - RETINOGRAM ABNORMAL [None]
  - WEIGHT DECREASED [None]
  - MACULAR OEDEMA [None]
  - RETINITIS PIGMENTOSA [None]
